FAERS Safety Report 12381431 (Version 2)
Quarter: 2016Q2

REPORT INFORMATION
  Report Type: Spontaneous
  Country: ZA (occurrence: ZA)
  Receive Date: 20160518
  Receipt Date: 20160518
  Transmission Date: 20160815
  Serious: Yes (Hospitalization)
  Sender: FDA-Public Use
  Company Number: ZA-ASTRAZENECA-2016SE52279

PATIENT
  Age: 76 Year
  Sex: Male

DRUGS (3)
  1. BYETTA [Suspect]
     Active Substance: EXENATIDE
     Route: 058
  2. INSULIN [Concomitant]
     Active Substance: INSULIN NOS
     Dosage: DOSE WAS REDUCED
  3. INSULIN [Concomitant]
     Active Substance: INSULIN NOS

REACTIONS (2)
  - Infection [Unknown]
  - Decreased appetite [Unknown]
